FAERS Safety Report 10655054 (Version 1)
Quarter: 2014Q4

REPORT INFORMATION
  Report Type: Spontaneous
  Country: US (occurrence: US)
  Receive Date: 20141216
  Receipt Date: 20141216
  Transmission Date: 20150529
  Serious: Yes (Hospitalization)
  Sender: FDA-Public Use
  Company Number: US-OTSUKA-US-2014-14534

PATIENT

DRUGS (6)
  1. VELCADE [Suspect]
     Active Substance: BORTEZOMIB
     Dosage: 2.6 MG MILLIGRAM(S), UNKNOWN
     Route: 058
     Dates: start: 20130105
  2. DACOGEN [Suspect]
     Active Substance: DECITABINE
     Dosage: 80 MG MILLIGRAM(S), UNKNOWN
     Route: 042
     Dates: start: 20130105
  3. VELCADE [Suspect]
     Active Substance: BORTEZOMIB
     Dosage: 5.6 MG MILLIGRAM(S), UNKNOWN
     Route: 058
     Dates: start: 20130307
  4. VELCADE [Suspect]
     Active Substance: BORTEZOMIB
     Indication: ACUTE MYELOID LEUKAEMIA
     Dosage: 1.3 MG/M2, UNKNOWN
     Route: 058
     Dates: start: 20121226
  5. DACOGEN [Suspect]
     Active Substance: DECITABINE
     Indication: ACUTE MYELOID LEUKAEMIA
     Dosage: 20 MG/M2, UNKNOWN, INDUCTION OVER 60 MINUTES
     Route: 042
     Dates: start: 20121226
  6. DACOGEN [Suspect]
     Active Substance: DECITABINE
     Dosage: 129 MG MILLIGRAM(S), UNKNOWN
     Route: 042
     Dates: start: 20130307

REACTIONS (7)
  - Dyspnoea [Unknown]
  - Neutrophil count decreased [Unknown]
  - Platelet count decreased [Unknown]
  - Febrile neutropenia [Unknown]
  - Pneumonitis [Recovering/Resolving]
  - Sinus bradycardia [Unknown]
  - Anaemia [Unknown]

NARRATIVE: CASE EVENT DATE: 20121228
